FAERS Safety Report 6327253-7 (Version None)
Quarter: 2009Q3

REPORT INFORMATION
  Report Type: 
  Country: None (occurrence: None)
  Receive Date: 20090825
  Receipt Date: 20090819
  Transmission Date: 20100115
  Serious: Yes (Hospitalization)
  Sender: FDA-Public Use
  Company Number: ZA-TEVA-204347ISR

PATIENT
  Sex: Male

DRUGS (6)
  1. METHOTREXATE [Suspect]
     Indication: RHEUMATOID ARTHRITIS
     Dates: start: 20080501
  2. ABATACEPT [Suspect]
     Indication: RHEUMATOID ARTHRITIS
     Route: 058
     Dates: start: 20081020
  3. BEZAFIBRATE [Concomitant]
     Dates: start: 20080501
  4. DICLOFENAC SODIUM [Concomitant]
     Dates: start: 20080501
  5. FOLIC ACID [Concomitant]
     Dates: start: 20080501
  6. PREDNISONE TAB [Concomitant]
     Dates: start: 20080501

REACTIONS (1)
  - ARTHRITIS BACTERIAL [None]
